FAERS Safety Report 20082236 (Version 3)
Quarter: 2022Q1

REPORT INFORMATION
  Report Type: Report from Study
  Country: US (occurrence: US)
  Receive Date: 20211117
  Receipt Date: 20220207
  Transmission Date: 20220423
  Serious: Yes (Death, Hospitalization, Other)
  Sender: FDA-Public Use
  Company Number: US-BRISTOL-MYERS SQUIBB COMPANY-BMS-2021-122905

PATIENT
  Age: 78 Year
  Sex: Male
  Weight: 88.45 kg

DRUGS (4)
  1. NIVOLUMAB [Suspect]
     Active Substance: NIVOLUMAB
     Indication: Malignant melanoma
     Dosage: UNK
     Route: 042
     Dates: start: 20210811
  2. IPILIMUMAB [Suspect]
     Active Substance: IPILIMUMAB
     Indication: Malignant melanoma
     Dosage: UNK
     Route: 042
     Dates: start: 20210811
  3. CIALIS [Concomitant]
     Active Substance: TADALAFIL
     Indication: Product used for unknown indication
     Dosage: UNK
     Route: 065
  4. VITAMINS [Concomitant]
     Active Substance: VITAMINS
     Indication: Product used for unknown indication
     Dosage: UNK
     Route: 065

REACTIONS (10)
  - Malignant melanoma [Fatal]
  - Sinus node dysfunction [Fatal]
  - Benign prostatic hyperplasia [Fatal]
  - Myasthenia gravis [Fatal]
  - Drug hypersensitivity [Unknown]
  - Liver disorder [Unknown]
  - Dysphagia [Unknown]
  - Urinary incontinence [Unknown]
  - Anal incontinence [Unknown]
  - Visual impairment [Unknown]

NARRATIVE: CASE EVENT DATE: 20210901
